FAERS Safety Report 7582522-8 (Version None)
Quarter: 2011Q2

REPORT INFORMATION
  Report Type: 
  Country: None (occurrence: None)
  Receive Date: 20110630
  Receipt Date: 20110627
  Transmission Date: 20111010
  Serious: No
  Sender: FDA-Public Use
  Company Number: US-PFIZER INC-2011105718

PATIENT
  Age: 65 Year
  Sex: Male

DRUGS (1)
  1. SUTENT [Suspect]
     Indication: RENAL CELL CARCINOMA
     Dosage: 4 WEEKS ON AND 2 WEEKS OFF

REACTIONS (8)
  - PAIN IN EXTREMITY [None]
  - GAIT DISTURBANCE [None]
  - HYPERTENSION [None]
  - DIARRHOEA [None]
  - ORAL PAIN [None]
  - QUALITY OF LIFE DECREASED [None]
  - FATIGUE [None]
  - ABDOMINAL PAIN [None]
